FAERS Safety Report 9090930 (Version 1)
Quarter: 2013Q1

REPORT INFORMATION
  Report Type: Spontaneous
  Country: JP (occurrence: JP)
  Receive Date: 20130201
  Receipt Date: 20130201
  Transmission Date: 20140127
  Serious: Yes (Other)
  Sender: FDA-Public Use
  Company Number: JP-NAPPMUNDI-GBR-2013-0013016

PATIENT
  Age: 73 Year
  Sex: Female

DRUGS (1)
  1. BUPRENORPHINE TRANSDERMAL SYSTEM 5 MG [Suspect]
     Indication: PRODUCT USED FOR UNKNOWN INDICATION
     Dosage: 5 MCG, Q1H
     Route: 062
     Dates: start: 20121130

REACTIONS (1)
  - Interstitial lung disease [Unknown]
